FAERS Safety Report 9292347 (Version 1)
Quarter: 2013Q2

REPORT INFORMATION
  Report Type: Spontaneous
  Country: US (occurrence: None)
  Receive Date: 20130515
  Receipt Date: 20130515
  Transmission Date: 20140414
  Serious: Yes (Life-Threatening)
  Sender: FDA-Public Use
  Company Number: None

PATIENT
  Sex: Female

DRUGS (2)
  1. ENBREL [Suspect]
     Indication: PSORIASIS
     Route: 058
     Dates: start: 20120323, end: 20130322
  2. HUMIRA [Suspect]
     Dosage: HUMIRA 40 MG ONCE WEEKLY SUBCUTANEOUS
     Route: 058
     Dates: start: 20110517, end: 20111214

REACTIONS (1)
  - Cardiac failure [None]
